FAERS Safety Report 12551903 (Version 1)
Quarter: 2016Q3

REPORT INFORMATION
  Report Type: Spontaneous
  Country: US (occurrence: US)
  Receive Date: 20160713
  Receipt Date: 20160713
  Transmission Date: 20161109
  Serious: No
  Sender: FDA-Public Use
  Company Number: US-BAYER-2016-135959

PATIENT
  Age: 66 Year
  Sex: Male
  Weight: 108.84 kg

DRUGS (3)
  1. CLARITIN-D 12 HOUR [Suspect]
     Active Substance: LORATADINE\PSEUDOEPHEDRINE SULFATE
     Indication: VIRAL PHARYNGITIS
     Dosage: 1 DF, BID
     Route: 048
     Dates: start: 20160706
  2. CLOFIBRIC ACID [Concomitant]
  3. CLARITIN-D 12 HOUR [Suspect]
     Active Substance: LORATADINE\PSEUDOEPHEDRINE SULFATE
     Indication: FRONTAL SINUS OPERATION

REACTIONS (2)
  - Micturition urgency [Not Recovered/Not Resolved]
  - Product use issue [None]

NARRATIVE: CASE EVENT DATE: 20160707
